FAERS Safety Report 11159086 (Version 1)
Quarter: 2015Q2

REPORT INFORMATION
  Report Type: Spontaneous
  Country: TW (occurrence: TW)
  Receive Date: 20150603
  Receipt Date: 20150603
  Transmission Date: 20150821
  Serious: Yes (Death, Hospitalization)
  Sender: FDA-Public Use
  Company Number: TW-TEVA-567465ISR

PATIENT
  Age: 48 Year
  Sex: Male

DRUGS (2)
  1. METHOTREXATE [Suspect]
     Active Substance: METHOTREXATE
     Indication: PSORIASIS
     Dosage: 10 MG EVERY WEEK
     Route: 065
  2. METHOTREXATE [Suspect]
     Active Substance: METHOTREXATE
     Indication: PSORIASIS
     Dosage: 7.5 MG EVERY WEEK
     Route: 048

REACTIONS (16)
  - Oral mucosa erosion [Unknown]
  - Renal failure [Unknown]
  - Pruritus [Unknown]
  - Respiratory distress [Unknown]
  - Toxicity to various agents [Fatal]
  - Pseudomonas infection [Unknown]
  - Erythema [Unknown]
  - Shock [Unknown]
  - Ventricular arrhythmia [Fatal]
  - Diarrhoea [Unknown]
  - Pancytopenia [Recovering/Resolving]
  - Ulcer [Unknown]
  - Hypoalbuminaemia [Unknown]
  - Urine output decreased [Unknown]
  - Heart injury [Unknown]
  - Tachycardia [Unknown]
